FAERS Safety Report 9726439 (Version 2)
Quarter: 2013Q4

REPORT INFORMATION
  Report Type: Spontaneous
  Country: GB (occurrence: None)
  Receive Date: 20131129
  Receipt Date: 20131218
  Transmission Date: 20140711
  Serious: Yes (Other)
  Sender: FDA-Public Use
  Company Number: AUR-APL-2013-09758

PATIENT
  Sex: 0

DRUGS (1)
  1. AMLODIPINE [Suspect]
     Indication: BLOOD PRESSURE SYSTOLIC INCREASED

REACTIONS (6)
  - Blood pressure increased [None]
  - Product quality issue [None]
  - Product physical issue [None]
  - Product substitution issue [None]
  - Adverse drug reaction [None]
  - Blood pressure systolic increased [None]
